FAERS Safety Report 6585532-2 (Version None)
Quarter: 2010Q1

REPORT INFORMATION
  Report Type: 
  Country: None (occurrence: None)
  Receive Date: 20100201
  Receipt Date: 20090903
  Transmission Date: 20100710
  Serious: Yes (Hospitalization)
  Sender: FDA-Public Use
  Company Number: 8047868

PATIENT
  Sex: Female
  Weight: 77.5 kg

DRUGS (14)
  1. KEPPRA [Suspect]
     Indication: CONVULSION
     Dosage: (500 MG BID ORAL), (250 MG BID ORAL)
     Route: 048
     Dates: start: 20040601, end: 20080601
  2. KEPPRA [Suspect]
     Indication: CONVULSION
     Dosage: (500 MG BID ORAL), (250 MG BID ORAL)
     Route: 048
     Dates: start: 20080601, end: 20080601
  3. ABILIFY [Concomitant]
  4. RISPERDAL [Concomitant]
  5. MOTRIN [Concomitant]
  6. VALIUM [Concomitant]
  7. DIASTAT [Concomitant]
  8. MIRENA [Concomitant]
  9. FERGON [Concomitant]
  10. ZONEGRAN [Concomitant]
  11. MULTI-VITAMINS [Concomitant]
  12. SEPTRA [Concomitant]
  13. MACRODANTIN [Concomitant]
  14. DEPAKOTE [Concomitant]

REACTIONS (11)
  - AFFECTIVE DISORDER [None]
  - ANAEMIA [None]
  - CONVULSION [None]
  - HEADACHE [None]
  - MENSTRUATION IRREGULAR [None]
  - OVARIAN CYST [None]
  - PSYCHOTIC DISORDER [None]
  - ROSACEA [None]
  - TREMOR [None]
  - URINARY TRACT INFECTION [None]
  - WEIGHT INCREASED [None]
